FAERS Safety Report 5526530-7 (Version None)
Quarter: 2007Q4

REPORT INFORMATION
  Report Type: 
  Country: None (occurrence: None)
  Receive Date: 20071121
  Receipt Date: 20071121
  Transmission Date: 20080405
  Serious: Yes (Other)
  Sender: FDA-Public Use
  Company Number: None

PATIENT
  Sex: Female
  Weight: 88.4514 kg

DRUGS (2)
  1. EFFEXORSR   150MG [Suspect]
     Indication: ANXIETY
     Dosage: 150MG DAILY PO
     Route: 048
     Dates: start: 20020501, end: 20070901
  2. EFFEXORSR   150MG [Suspect]
     Indication: DEPRESSION
     Dosage: 150MG DAILY PO
     Route: 048
     Dates: start: 20020501, end: 20070901

REACTIONS (5)
  - ABNORMAL BEHAVIOUR [None]
  - DECREASED INTEREST [None]
  - ECONOMIC PROBLEM [None]
  - LIBIDO DECREASED [None]
  - WEIGHT INCREASED [None]
